FAERS Safety Report 9788095 (Version 2)
Quarter: 2014Q1

REPORT INFORMATION
  Report Type: Spontaneous
  Country: US (occurrence: US)
  Receive Date: 20131230
  Receipt Date: 20140131
  Transmission Date: 20141002
  Serious: No
  Sender: FDA-Public Use
  Company Number: US-009507513-1312USA010247

PATIENT
  Age: 52 Year
  Sex: Male
  Weight: 88.89 kg

DRUGS (7)
  1. PEGINTRON [Suspect]
     Indication: HEPATITIS C
     Dosage: 120 MG, UNK
     Route: 058
     Dates: start: 20131003
  2. PEGINTRON [Suspect]
     Dosage: UNK
     Route: 058
     Dates: start: 20111101, end: 20120601
  3. REBETOL [Suspect]
     Indication: HEPATITIS C
     Dosage: 1200 MG
     Route: 048
     Dates: start: 20131003
  4. REBETOL [Suspect]
     Dosage: UNK
     Route: 048
     Dates: start: 20111101, end: 20120601
  5. CELEXA [Concomitant]
     Dosage: 20 MG, QD
     Route: 048
     Dates: start: 20131213
  6. NORVASC [Concomitant]
     Dosage: UNK
     Route: 048
     Dates: start: 20100506
  7. VITAMINS (UNSPECIFIED) [Concomitant]

REACTIONS (2)
  - Drug ineffective [Recovered/Resolved]
  - Influenza like illness [Recovered/Resolved]
